FAERS Safety Report 18916794 (Version 1)
Quarter: 2021Q1

REPORT INFORMATION
  Report Type: Spontaneous
  Country: US (occurrence: US)
  Receive Date: 20210219
  Receipt Date: 20210219
  Transmission Date: 20210420
  Serious: No
  Sender: FDA-Public Use
  Company Number: US-SA-2021SA047329

PATIENT
  Age: 83 Year
  Sex: Female

DRUGS (1)
  1. ALLEGRA [Suspect]
     Active Substance: FEXOFENADINE HYDROCHLORIDE
     Indication: EYE PRURITUS
     Dosage: 180 MG, QD
     Route: 048
     Dates: start: 20210203

REACTIONS (2)
  - Eye pruritus [Not Recovered/Not Resolved]
  - Drug ineffective [Unknown]
